FAERS Safety Report 8596935-9 (Version None)
Quarter: 2012Q3

REPORT INFORMATION
  Report Type: 
  Country: None (occurrence: None)
  Receive Date: 20120815
  Receipt Date: 20120803
  Transmission Date: 20120928
  Serious: Yes (Hospitalization)
  Sender: FDA-Public Use
  Company Number: GB-AMGEN-UK252633

PATIENT
  Age: 51 Year
  Sex: Female

DRUGS (5)
  1. LEVOTHYROXINE SODIUM [Concomitant]
     Dosage: UNK UNK, UNK
     Route: 065
  2. CINACALCET HYDROCHLORIDE [Suspect]
     Indication: HYPERPARATHYROIDISM SECONDARY
     Dosage: UNK UNK, QD
     Route: 048
     Dates: start: 20061220
  3. ATENOLOL [Concomitant]
     Dosage: UNK UNK, UNK
     Route: 065
  4. NEURONTIN [Concomitant]
     Dosage: UNK UNK, UNK
     Route: 065
  5. ASPIRIN [Concomitant]
     Dosage: UNK UNK, UNK
     Route: 065

REACTIONS (1)
  - SUPRAVENTRICULAR TACHYCARDIA [None]
